FAERS Safety Report 11495310 (Version 1)
Quarter: 2015Q3

REPORT INFORMATION
  Report Type: Spontaneous
  Country: US (occurrence: US)
  Receive Date: 20150911
  Receipt Date: 20150911
  Transmission Date: 20151125
  Serious: No
  Sender: FDA-Public Use
  Company Number: US-ROCHE-788182

PATIENT
  Sex: Male

DRUGS (2)
  1. PEGASYS [Suspect]
     Active Substance: PEGINTERFERON ALFA-2A
     Indication: CHRONIC HEPATITIS C
     Route: 058
     Dates: start: 20110311, end: 20120204
  2. RIBAVIRIN. [Suspect]
     Active Substance: RIBAVIRIN
     Indication: CHRONIC HEPATITIS C
     Dosage: IN DIVIDED DOSES
     Route: 048
     Dates: start: 20110311, end: 20120204

REACTIONS (9)
  - Pain [Unknown]
  - Apathy [Unknown]
  - Anaemia [Unknown]
  - Insomnia [Unknown]
  - Fatigue [Unknown]
  - Crying [Unknown]
  - Dyspnoea [Unknown]
  - Nausea [Unknown]
  - Decreased appetite [Unknown]
